FAERS Safety Report 7678740-0 (Version None)
Quarter: 2011Q3

REPORT INFORMATION
  Report Type: 
  Country: None (occurrence: None)
  Receive Date: 20110811
  Receipt Date: 20110803
  Transmission Date: 20111222
  Serious: Yes (Death)
  Sender: FDA-Public Use
  Company Number: GB-GENENTECH-312796

PATIENT
  Sex: Male

DRUGS (9)
  1. LUCENTIS [Suspect]
     Indication: PRODUCT USED FOR UNKNOWN INDICATION
     Dosage: UNK UNK, UNKNOWN
     Route: 031
  2. RAMIPRIL [Concomitant]
     Indication: PRODUCT USED FOR UNKNOWN INDICATION
  3. SPIRONOLACTONE [Concomitant]
  4. WARFARIN [Concomitant]
     Indication: PRODUCT USED FOR UNKNOWN INDICATION
  5. CARBAMAZEPINE [Concomitant]
     Indication: PRODUCT USED FOR UNKNOWN INDICATION
  6. BUMETANIDE [Concomitant]
     Indication: PRODUCT USED FOR UNKNOWN INDICATION
  7. BISOPROLOL FUMARATE [Concomitant]
     Indication: PRODUCT USED FOR UNKNOWN INDICATION
  8. SPIRONOLACTONE [Concomitant]
     Indication: PRODUCT USED FOR UNKNOWN INDICATION
  9. OXYBUTYNIN [Concomitant]
     Indication: PRODUCT USED FOR UNKNOWN INDICATION

REACTIONS (8)
  - CARDIAC VALVE DISEASE [None]
  - MITRAL VALVE DISEASE [None]
  - CARDIAC FAILURE CONGESTIVE [None]
  - CARDIOMEGALY [None]
  - UNRESPONSIVE TO STIMULI [None]
  - RENAL FAILURE CHRONIC [None]
  - MYOCARDIAL ISCHAEMIA [None]
  - ARTERIOSCLEROSIS CORONARY ARTERY [None]
